FAERS Safety Report 10693088 (Version 2)
Quarter: 2015Q1

REPORT INFORMATION
  Report Type: Spontaneous
  Country: FR (occurrence: FR)
  Receive Date: 20150106
  Receipt Date: 20150127
  Transmission Date: 20150720
  Serious: Yes (Hospitalization)
  Sender: FDA-Public Use
  Company Number: FR-EMD SERONO-8003830

PATIENT
  Age: 42 Year
  Sex: Female

DRUGS (4)
  1. OVITRELLE [Suspect]
     Active Substance: CHORIOGONADOTROPIN ALFA
     Indication: OVULATION INDUCTION
     Dosage: SINGLE ADMINISTRATION (FORM STRENGTH: 250 MICROGRAMS/0.5 ML)
     Route: 058
     Dates: start: 20141004, end: 20141004
  2. MENOPUR [Suspect]
     Active Substance: FOLLICLE STIMULATING HORMONE BETA POLYPEPTIDE\LUTROPIN ALFA
     Indication: OVULATION INDUCTION
     Route: 058
     Dates: start: 20140927, end: 20141003
  3. LOVENOX [Concomitant]
     Active Substance: ENOXAPARIN SODIUM
     Indication: THROMBOSIS PROPHYLAXIS
     Dosage: 0.4 ML/D
  4. ORGALUTRAN [Suspect]
     Active Substance: GANIRELIX ACETATE
     Indication: OVULATION INDUCTION
     Dosage: FORM STRENGTH: 0.25 MG/0.5 ML
     Route: 058
     Dates: start: 20141002, end: 20141003

REACTIONS (3)
  - Chest pain [Recovered/Resolved]
  - Respiratory alkalosis [None]
  - Ovarian hyperstimulation syndrome [Recovered/Resolved]

NARRATIVE: CASE EVENT DATE: 20141011
